FAERS Safety Report 6045574-2 (Version None)
Quarter: 2009Q1

REPORT INFORMATION
  Report Type: 
  Country: None (occurrence: None)
  Receive Date: 20090121
  Receipt Date: 20090112
  Transmission Date: 20090719
  Serious: Yes (Life-Threatening, Hospitalization)
  Sender: FDA-Public Use
  Company Number: DE-ASTRAZENECA-2009PK00358

PATIENT
  Age: 82 Year
  Sex: Male
  Weight: 77 kg

DRUGS (9)
  1. METOPROLOL SUCCINATE [Suspect]
     Indication: HYPERTENSION
     Route: 048
  2. ACTRAPID NOVOLET [Interacting]
     Indication: TYPE 2 DIABETES MELLITUS
     Route: 058
  3. ACTRAPHANE HM [Interacting]
     Indication: TYPE 2 DIABETES MELLITUS
     Dosage: 30-0-26 IU
     Route: 058
  4. HYDROCHLOROTHIAZIDE [Concomitant]
     Indication: HYPERTENSION
     Route: 048
  5. MOXONIDINE [Concomitant]
     Indication: HYPERTENSION
     Dosage: 0.2-0-0.4 MG
     Route: 048
  6. ATACAND [Concomitant]
     Indication: HYPERTENSION
     Route: 048
  7. SIMVASTATIN [Concomitant]
     Indication: CARDIOVASCULAR EVENT PROPHYLAXIS
     Route: 048
  8. CARMEN [Concomitant]
     Indication: HYPERTENSION
     Route: 048
  9. DOXAZOSIN MESYLATE [Concomitant]
     Indication: HYPERTENSION
     Route: 048

REACTIONS (3)
  - DRUG INTERACTION [None]
  - HYPOGLYCAEMIC SEIZURE [None]
  - SHOCK HYPOGLYCAEMIC [None]
